FAERS Safety Report 16313466 (Version 1)
Quarter: 2019Q2

REPORT INFORMATION
  Report Type: Spontaneous
  Country: US (occurrence: US)
  Receive Date: 20190514
  Receipt Date: 20190514
  Transmission Date: 20190711
  Serious: Yes (Other)
  Sender: FDA-Public Use
  Company Number: None

PATIENT
  Age: 76 Year
  Sex: Female
  Weight: 69.85 kg

DRUGS (7)
  1. HYDRALAZINE [Concomitant]
     Active Substance: HYDRALAZINE HYDROCHLORIDE
  2. CLONIDINE TRANSDERMAL SYSTEM [Suspect]
     Active Substance: CLONIDINE
  3. CLONIDINE 0.3 PATCH [Concomitant]
  4. CLONIDINE 0.1 MG [Concomitant]
     Active Substance: CLONIDINE
  5. HCTZ [Concomitant]
     Active Substance: HYDROCHLOROTHIAZIDE
  6. LOSARTAN. [Concomitant]
     Active Substance: LOSARTAN
  7. PAXIL [Concomitant]
     Active Substance: PAROXETINE HYDROCHLORIDE

REACTIONS (3)
  - Blood pressure systolic increased [None]
  - Product adhesion issue [None]
  - Incorrect dose administered by product [None]
